FAERS Safety Report 11174390 (Version 1)
Quarter: 2015Q2

REPORT INFORMATION
  Report Type: Spontaneous
  Country: US (occurrence: US)
  Receive Date: 20150609
  Receipt Date: 20150609
  Transmission Date: 20150821
  Serious: Yes (Hospitalization)
  Sender: FDA-Public Use
  Company Number: US-SA-2015SA079404

PATIENT
  Age: 61 Year
  Sex: Male
  Weight: 61 kg

DRUGS (9)
  1. FRAGMIN [Concomitant]
     Active Substance: DALTEPARIN SODIUM
     Dates: start: 20150408
  2. LOVENOX [Suspect]
     Active Substance: ENOXAPARIN SODIUM
     Route: 065
     Dates: start: 20150408
  3. KYTRIL [Concomitant]
     Active Substance: GRANISETRON HYDROCHLORIDE
     Dates: start: 20150316
  4. MIRALAX [Concomitant]
     Active Substance: POLYETHYLENE GLYCOL 3350
     Dates: start: 20150413
  5. ZYPREXA [Concomitant]
     Active Substance: OLANZAPINE
     Dates: start: 20150323
  6. INVESTIGATIONAL DRUG [Suspect]
     Active Substance: INVESTIGATIONAL PRODUCT
     Indication: TRANSITIONAL CELL CARCINOMA
     Dosage: 3 TIME A WEEK
     Route: 065
     Dates: start: 20150309
  7. PERCOCET [Concomitant]
     Active Substance: ACETAMINOPHEN\OXYCODONE HYDROCHLORIDE
  8. DULCOLAX [Concomitant]
     Active Substance: BISACODYL OR DOCUSATE SODIUM
     Dates: start: 20150413
  9. XANAX [Concomitant]
     Active Substance: ALPRAZOLAM
     Dates: start: 20141008

REACTIONS (4)
  - Dehydration [Recovered/Resolved]
  - Lower gastrointestinal haemorrhage [Unknown]
  - Haematemesis [Recovered/Resolved]
  - Vomiting [Recovered/Resolved]
